FAERS Safety Report 5294870-5 (Version None)
Quarter: 2007Q2

REPORT INFORMATION
  Report Type: 
  Country: None (occurrence: None)
  Receive Date: 20070411
  Receipt Date: 20070212
  Transmission Date: 20071010
  Serious: No
  Sender: FDA-Public Use
  Company Number: DL2007034

PATIENT
  Age: 37 Year
  Sex: Female

DRUGS (3)
  1. MIFEPRISTONE TABLETS, 200 MG (DANCO LABS) [Suspect]
     Indication: ABORTION INDUCED
     Dosage: 200 MG, ORAL
     Route: 048
     Dates: start: 20061222
  2. MISOPROSTOL [Suspect]
     Dosage: SEE IMAGE
     Route: 002
     Dates: start: 20061223, end: 20061224
  3. MISOPROSTOL [Suspect]
     Dosage: SEE IMAGE
     Route: 002
     Dates: start: 20061229

REACTIONS (5)
  - DIZZINESS [None]
  - HAEMORRHAGE [None]
  - HYPERHIDROSIS [None]
  - HYPOTENSION [None]
  - THIRST [None]
